FAERS Safety Report 6464333-X (Version None)
Quarter: 2009Q4

REPORT INFORMATION
  Report Type: 
  Country: None (occurrence: None)
  Receive Date: 20091201
  Receipt Date: 20091117
  Transmission Date: 20100525
  Serious: Yes (Hospitalization)
  Sender: FDA-Public Use
  Company Number: GXKR2009DE12536

PATIENT
  Age: 78 Year
  Sex: Female
  Weight: 83 kg

DRUGS (4)
  1. DICLAC (NGX) [Suspect]
     Indication: OSTEOARTHRITIS
     Dosage: 75 MG, QD
     Route: 048
     Dates: start: 20090401, end: 20090924
  2. ACETYLSALICYLIC ACID SRT [Interacting]
     Indication: PLATELET AGGREGATION INHIBITION
     Dosage: 100 MG, QD
     Dates: start: 20070101, end: 20090924
  3. DIOVANE [Concomitant]
  4. RADEDORM [Concomitant]

REACTIONS (1)
  - COLITIS [None]
